FAERS Safety Report 25003141 (Version 1)
Quarter: 2025Q1

REPORT INFORMATION
  Report Type: Spontaneous
  Country: US (occurrence: US)
  Receive Date: 20250224
  Receipt Date: 20250224
  Transmission Date: 20250409
  Serious: Yes (Other)
  Sender: COOPERSURGICAL
  Company Number: US-COOPERSURGICAL, INC.-2025CPS001081

PATIENT
  Age: 28 Year
  Sex: Female
  Weight: 81.633 kg

DRUGS (3)
  1. PARAGARD T 380A [Suspect]
     Active Substance: COPPER
     Route: 015
     Dates: start: 20150306, end: 20230301
  2. SHAROBEL [Concomitant]
     Active Substance: NORETHINDRONE
     Dates: start: 201806, end: 202010
  3. SHAROBEL [Concomitant]
     Active Substance: NORETHINDRONE
     Dates: start: 202109, end: 202308

REACTIONS (11)
  - Reproductive complication associated with device [Not Recovered/Not Resolved]
  - Device breakage [Recovered/Resolved]
  - Foreign body in reproductive tract [Recovered/Resolved]
  - Complication of device removal [Recovered/Resolved]
  - Vulvovaginal burning sensation [Unknown]
  - Uterine adhesions [Unknown]
  - Emotional disorder [Unknown]
  - Bartholin^s abscess [Unknown]
  - Heavy menstrual bleeding [Unknown]
  - Dysmenorrhoea [Unknown]
  - Bacterial vaginosis [Unknown]

NARRATIVE: CASE EVENT DATE: 20200729
